FAERS Safety Report 14255181 (Version 2)
Quarter: 2018Q1

REPORT INFORMATION
  Report Type: Report from Study
  Country: FR (occurrence: FR)
  Receive Date: 20171206
  Receipt Date: 20180312
  Transmission Date: 20180508
  Serious: Yes (Hospitalization)
  Sender: FDA-Public Use
  Company Number: FR-VELOXIS PHARMACEUTICALS-2036806

PATIENT
  Age: 42 Year
  Sex: Male
  Weight: 93 kg

DRUGS (14)
  1. PROGRAF [Concomitant]
     Active Substance: TACROLIMUS\TACROLIMUS ANHYDROUS
     Dates: start: 20170603, end: 20170705
  2. ENVARSUS XR [Suspect]
     Active Substance: TACROLIMUS
     Indication: PROPHYLAXIS AGAINST TRANSPLANT REJECTION
     Route: 048
     Dates: start: 20170831, end: 20170906
  3. PROGRAF [Concomitant]
     Active Substance: TACROLIMUS\TACROLIMUS ANHYDROUS
     Dates: start: 20170516, end: 20170606
  4. CELLCEPT [Concomitant]
     Active Substance: MYCOPHENOLATE MOFETIL\MYCOPHENOLATE MOFETIL HYDROCHLORIDE
     Dates: start: 20170626
  5. UVEDOSE [Concomitant]
     Active Substance: CHOLECALCIFEROL
     Dates: start: 20170831
  6. CORTANCYL [Concomitant]
     Active Substance: PREDNISONE
     Dates: start: 20170523
  7. PROGRAF [Concomitant]
     Active Substance: TACROLIMUS\TACROLIMUS ANHYDROUS
     Dates: start: 20170713, end: 20170726
  8. LIPANTHYL [Concomitant]
     Active Substance: FENOFIBRATE
     Dates: start: 20170831
  9. INEXIUM [Concomitant]
     Active Substance: ESOMEPRAZOLE
     Dates: start: 20170516
  10. ENVARSUS XR [Suspect]
     Active Substance: TACROLIMUS
     Dates: start: 20170907, end: 20171026
  11. NEBIVOLOL. [Concomitant]
     Active Substance: NEBIVOLOL
     Dates: start: 20170518
  12. PROGRAF [Concomitant]
     Active Substance: TACROLIMUS\TACROLIMUS ANHYDROUS
     Dates: start: 20170705, end: 20170713
  13. PROGRAF [Concomitant]
     Active Substance: TACROLIMUS\TACROLIMUS ANHYDROUS
     Dates: start: 20170726, end: 20170831
  14. LIPANTHYL [Concomitant]
     Active Substance: FENOFIBRATE

REACTIONS (1)
  - Pyrexia [Recovering/Resolving]

NARRATIVE: CASE EVENT DATE: 20171026
